FAERS Safety Report 5524958-2 (Version None)
Quarter: 2007Q4

REPORT INFORMATION
  Report Type: 
  Country: None (occurrence: None)
  Receive Date: 20071126
  Receipt Date: 20071112
  Transmission Date: 20080405
  Serious: Yes (Hospitalization)
  Sender: FDA-Public Use
  Company Number: US-ELI_LILLY_AND_COMPANY-US200710002828

PATIENT
  Age: 58 Year
  Sex: Male

DRUGS (5)
  1. CYMBALTA [Suspect]
     Dosage: UNK, UNK
     Route: 048
     Dates: start: 20070901, end: 20070101
  2. AMITRIPTYLINE HCL [Concomitant]
  3. ALPRAZOLAM [Concomitant]
  4. PLAVIX [Concomitant]
  5. NEXIUM [Concomitant]

REACTIONS (1)
  - PNEUMONIA [None]
